FAERS Safety Report 15418979 (Version 1)
Quarter: 2018Q3

REPORT INFORMATION
  Report Type: Spontaneous
  Country: ES (occurrence: ES)
  Receive Date: 20180924
  Receipt Date: 20180924
  Transmission Date: 20181010
  Serious: Yes (Death)
  Sender: FDA-Public Use
  Company Number: ES-JNJFOC-20180922321

PATIENT
  Age: 72 Year
  Sex: Female
  Weight: 52 kg

DRUGS (1)
  1. DARATUMUMAB [Suspect]
     Active Substance: DARATUMUMAB
     Indication: AMYLOIDOSIS
     Route: 041
     Dates: start: 20180907, end: 20180907

REACTIONS (7)
  - Chest pain [Fatal]
  - Hypertension [Fatal]
  - Infusion related reaction [Fatal]
  - Cardio-respiratory arrest [Fatal]
  - Bronchospasm [Fatal]
  - Loss of consciousness [Fatal]
  - Off label use [Unknown]

NARRATIVE: CASE EVENT DATE: 20180907
